FAERS Safety Report 23375304 (Version 3)
Quarter: 2024Q2

REPORT INFORMATION
  Report Type: Other
  Country: US (occurrence: US)
  Receive Date: 20240106
  Receipt Date: 20240426
  Transmission Date: 20240716
  Serious: Yes (Other)
  Sender: FDA-Public Use
  Company Number: US-SIGA Technologies, Inc.-2150255

PATIENT
  Age: 34 Year
  Sex: Male

DRUGS (6)
  1. TPOXX [Suspect]
     Active Substance: TECOVIRIMAT
     Indication: Monkeypox
     Route: 048
  2. TPOXX [Suspect]
     Active Substance: TECOVIRIMAT
     Route: 042
  3. ACYCLOVIR [Suspect]
     Active Substance: ACYCLOVIR
     Dates: end: 20221019
  4. BACTRIM [Suspect]
     Active Substance: SULFAMETHOXAZOLE\TRIMETHOPRIM
     Dates: end: 20221018
  5. antiretroviral therapy (ART) [Concomitant]
     Route: 042
  6. vaccinia immune globulin (VIGIV) [Concomitant]
     Route: 042

REACTIONS (5)
  - Drug resistance [Unknown]
  - Underdose [Unknown]
  - Acute kidney injury [Recovering/Resolving]
  - Proctalgia [Unknown]
  - Suicidal ideation [Unknown]
